FAERS Safety Report 11107854 (Version 1)
Quarter: 2015Q2

REPORT INFORMATION
  Report Type: Spontaneous
  Country: US (occurrence: US)
  Receive Date: 20150512
  Receipt Date: 20150512
  Transmission Date: 20150821
  Serious: Yes (Other)
  Sender: FDA-Public Use
  Company Number: US-ASTRAZENECA-2015SE42247

PATIENT
  Sex: Male

DRUGS (5)
  1. SYMBICORT [Suspect]
     Active Substance: BUDESONIDE\FORMOTEROL FUMARATE DIHYDRATE
     Indication: CHRONIC OBSTRUCTIVE PULMONARY DISEASE
     Dosage: BID
     Route: 055
  2. PULMICORT TURBUHALER [Suspect]
     Active Substance: BUDESONIDE
     Indication: CHRONIC OBSTRUCTIVE PULMONARY DISEASE
     Route: 055
  3. PAIN MEDICATION [Concomitant]
     Active Substance: UNSPECIFIED INGREDIENT
  4. DIFFERENT 22 MEDICATIONS [Concomitant]
  5. PREDNISONE. [Concomitant]
     Active Substance: PREDNISONE
     Dates: start: 2013

REACTIONS (5)
  - Cardiac valve disease [Unknown]
  - Large intestine perforation [Unknown]
  - Off label use [Not Recovered/Not Resolved]
  - Lung disorder [Unknown]
  - Renal failure [Unknown]
